FAERS Safety Report 5136842-7 (Version None)
Quarter: 2006Q4

REPORT INFORMATION
  Report Type: 
  Country: None (occurrence: None)
  Receive Date: 20061023
  Receipt Date: 20061011
  Transmission Date: 20070319
  Serious: Yes (Death)
  Sender: FDA-Public Use
  Company Number: 2006AD000076

PATIENT
  Age: 90 Year

DRUGS (1)
  1. CEPHALEXIN [Suspect]
     Indication: URINARY TRACT INFECTION
     Dosage: 250 MG; UNK; PO
     Route: 048
     Dates: start: 20060609

REACTIONS (1)
  - CLOSTRIDIAL INFECTION [None]
